FAERS Safety Report 18573487 (Version 1)
Quarter: 2020Q4

REPORT INFORMATION
  Report Type: Spontaneous
  Country: US (occurrence: US)
  Receive Date: 20201203
  Receipt Date: 20201203
  Transmission Date: 20210114
  Serious: Yes (Life-Threatening, Hospitalization, Disabling, Other)
  Sender: FDA-Public Use
  Company Number: US-AXELLIA-003521

PATIENT
  Age: 59 Year
  Sex: Male
  Weight: 77.1 kg

DRUGS (8)
  1. SUXAMETHONIUM [Concomitant]
     Active Substance: SUCCINYLCHOLINE
  2. ETOMIDATE/ETOMIDATE HYDROCHLORIDE/ETOMIDATE SULFATE [Concomitant]
     Active Substance: ETOMIDATE
  3. FENTANYL. [Concomitant]
     Active Substance: FENTANYL
  4. VANCOMYCIN [Suspect]
     Active Substance: VANCOMYCIN
     Indication: PRODUCT USED FOR UNKNOWN INDICATION
  5. LIDOCAINE. [Concomitant]
     Active Substance: LIDOCAINE
  6. HEPARIN [Concomitant]
     Active Substance: HEPARIN SODIUM
  7. RUXOLITINIB [Suspect]
     Active Substance: RUXOLITINIB
     Indication: CYTOKINE STORM
     Dosage: BID (REGIMEN 1), LAST DOSE ADMINISTERED ON 14-OCT-2020
     Route: 048
     Dates: start: 20201007
  8. PROPOFOL. [Concomitant]
     Active Substance: PROPOFOL

REACTIONS (3)
  - Pneumothorax [Not Recovered/Not Resolved]
  - Acute kidney injury [Not Recovered/Not Resolved]
  - Acute respiratory distress syndrome [Not Recovered/Not Resolved]

NARRATIVE: CASE EVENT DATE: 20201017
